FAERS Safety Report 24981697 (Version 1)
Quarter: 2025Q1

REPORT INFORMATION
  Report Type: Spontaneous
  Country: US (occurrence: None)
  Receive Date: 20250217
  Receipt Date: 20250217
  Transmission Date: 20250409
  Serious: Yes (Other)
  Sender: FDA-CTU
  Company Number: None

PATIENT
  Age: 58 Year
  Sex: Female
  Weight: 94.5 kg

DRUGS (3)
  1. ZEPBOUND [Suspect]
     Active Substance: TIRZEPATIDE
     Indication: Obesity
     Dates: start: 20250207
  2. Gruns [Concomitant]
  3. CREATINE [Concomitant]
     Active Substance: CREATINE

REACTIONS (3)
  - Drug ineffective [None]
  - Dermatitis [None]
  - Therapy change [None]

NARRATIVE: CASE EVENT DATE: 20250213
